FAERS Safety Report 8008744-X (Version None)
Quarter: 2011Q4

REPORT INFORMATION
  Report Type: 
  Country: None (occurrence: None)
  Receive Date: 20111227
  Receipt Date: 20111031
  Transmission Date: 20120403
  Serious: No
  Sender: FDA-Public Use
  Company Number: US-BAYER-2011-106171

PATIENT
  Age: 72 Year
  Sex: Male

DRUGS (10)
  1. DIGOXIN [Concomitant]
  2. METOPROLOL SUCCINATE [Concomitant]
  3. STAXYN [Suspect]
     Dosage: 10 MG, UNK
     Route: 048
     Dates: start: 20111001
  4. KEPPRA [Concomitant]
  5. ALCOHOL [Concomitant]
  6. STAXYN [Suspect]
     Indication: ERECTILE DYSFUNCTION
     Dosage: 10 MG, UNK
     Route: 048
     Dates: start: 20111001
  7. STAXYN [Suspect]
     Dosage: 10 MG, UNK
     Route: 048
     Dates: start: 20111001
  8. STAXYN [Suspect]
     Dosage: 10 MG, UNK
     Route: 048
     Dates: start: 20111001
  9. COUMADIN [Concomitant]
  10. SIMVASTATIN [Concomitant]

REACTIONS (1)
  - ERECTILE DYSFUNCTION [None]
